FAERS Safety Report 12841251 (Version 1)
Quarter: 2016Q4

REPORT INFORMATION
  Report Type: Spontaneous
  Country: SE (occurrence: SE)
  Receive Date: 20161012
  Receipt Date: 20161012
  Transmission Date: 20170207
  Serious: Yes (Other)
  Sender: FDA-Public Use
  Company Number: SE-ELI_LILLY_AND_COMPANY-SE201610001859

PATIENT
  Age: 19 Year
  Sex: Female

DRUGS (1)
  1. CYMBALTA [Suspect]
     Active Substance: DULOXETINE HYDROCHLORIDE
     Indication: PRODUCT USED FOR UNKNOWN INDICATION
     Dosage: 30 MG, UNKNOWN
     Route: 065
     Dates: start: 2015, end: 201609

REACTIONS (9)
  - Unresponsive to stimuli [Unknown]
  - Balance disorder [Unknown]
  - Dyspnoea [Unknown]
  - Myalgia [Unknown]
  - Angina pectoris [Unknown]
  - Muscle spasms [Not Recovered/Not Resolved]
  - Drug interaction [Unknown]
  - Withdrawal syndrome [Unknown]
  - Paraesthesia [Unknown]

NARRATIVE: CASE EVENT DATE: 201609
